FAERS Safety Report 18320766 (Version 3)
Quarter: 2020Q4

REPORT INFORMATION
  Report Type: Spontaneous
  Country: US (occurrence: US)
  Receive Date: 20200928
  Receipt Date: 20201102
  Transmission Date: 20210113
  Serious: Yes (Hospitalization, Other)
  Sender: FDA-Public Use
  Company Number: US-AMNEAL PHARMACEUTICALS-2020-AMRX-02889

PATIENT
  Age: 76 Year
  Sex: Female

DRUGS (4)
  1. RYTARY [Suspect]
     Active Substance: CARBIDOPA\LEVODOPA
     Dosage: 36.25/145 MG, 2 CAPSULES, 4 /DAY
     Route: 048
     Dates: start: 202008, end: 202008
  2. RYTARY [Suspect]
     Active Substance: CARBIDOPA\LEVODOPA
     Indication: PRODUCT USED FOR UNKNOWN INDICATION
     Dosage: 23.75/95 MG, 1 CAPSULES, 4 /DAY
     Route: 048
     Dates: start: 202008, end: 202008
  3. RYTARY [Suspect]
     Active Substance: CARBIDOPA\LEVODOPA
     Dosage: 23.75/95 MG, 1 CAPSULES, 4 /DAY
     Route: 048
  4. RYTARY [Suspect]
     Active Substance: CARBIDOPA\LEVODOPA
     Dosage: 48.75/145MG, 2 CAPSULES, 4 /DAY
     Route: 048

REACTIONS (12)
  - Loss of consciousness [Recovered/Resolved]
  - Dyskinesia [Recovered/Resolved]
  - Cognitive disorder [Recovered/Resolved]
  - Pain [Recovered/Resolved]
  - Blood pressure decreased [Unknown]
  - Tremor [Recovered/Resolved]
  - Dysphagia [Recovered/Resolved]
  - Fall [Unknown]
  - Speech disorder [Recovered/Resolved]
  - Dyspnoea [Recovered/Resolved]
  - Therapeutic response shortened [Not Recovered/Not Resolved]
  - Gait inability [Unknown]

NARRATIVE: CASE EVENT DATE: 2020
